FAERS Safety Report 8406065-4 (Version None)
Quarter: 2012Q2

REPORT INFORMATION
  Report Type: 
  Country: None (occurrence: None)
  Receive Date: 20120604
  Receipt Date: 20120525
  Transmission Date: 20120825
  Serious: Yes (Other)
  Sender: FDA-Public Use
  Company Number: US-JNJFOC-20111000149

PATIENT
  Sex: Male

DRUGS (8)
  1. ACCUPRIL [Concomitant]
     Indication: HYPERTENSION
     Route: 065
  2. LEVAQUIN [Suspect]
     Route: 048
     Dates: start: 20090101
  3. HYDROCHLOROTHIAZIDE [Concomitant]
     Indication: HYPERTENSION
     Route: 065
  4. LEVAQUIN [Suspect]
     Indication: SINUSITIS
     Route: 048
     Dates: start: 20080101
  5. ALLERX-D [Concomitant]
     Indication: SINUSITIS
     Route: 065
     Dates: start: 20090501, end: 20101001
  6. LEVAQUIN [Suspect]
     Indication: PHARYNGITIS
     Route: 048
     Dates: start: 20080101
  7. LEVAQUIN [Suspect]
     Route: 048
     Dates: start: 20090101
  8. LEVAQUIN [Suspect]
     Route: 048

REACTIONS (2)
  - TENDON RUPTURE [None]
  - TENOSYNOVITIS [None]
